FAERS Safety Report 24215067 (Version 1)
Quarter: 2024Q3

REPORT INFORMATION
  Report Type: Spontaneous
  Country: US (occurrence: US)
  Receive Date: 20240816
  Receipt Date: 20240816
  Transmission Date: 20241016
  Serious: No
  Sender: EMCURE
  Company Number: US-AVET LIFESCIENCES LTD-2024-AVET-000283

PATIENT

DRUGS (1)
  1. HYDRALAZINE HYDROCHLORIDE [Suspect]
     Active Substance: HYDRALAZINE HYDROCHLORIDE
     Indication: Hypertension
     Dosage: 50 MILLIGRAM, TID
     Route: 048
     Dates: start: 20240709

REACTIONS (6)
  - Peripheral swelling [Not Recovered/Not Resolved]
  - Throat irritation [Not Recovered/Not Resolved]
  - Product physical issue [Unknown]
  - Dysphagia [Not Recovered/Not Resolved]
  - Drug intolerance [Unknown]
  - Cough [Unknown]

NARRATIVE: CASE EVENT DATE: 20240709
